FAERS Safety Report 6266983-2 (Version None)
Quarter: 2009Q3

REPORT INFORMATION
  Report Type: 
  Country: None (occurrence: None)
  Receive Date: 20090714
  Receipt Date: 20090701
  Transmission Date: 20100115
  Serious: Yes (Hospitalization)
  Sender: FDA-Public Use
  Company Number: PHHY2009CH26556

PATIENT
  Age: 77 Year
  Sex: Female

DRUGS (3)
  1. VOLTAREN [Suspect]
     Indication: MUSCULOSKELETAL PAIN
     Dosage: UNK
     Dates: end: 20081209
  2. PROPOFOL [Suspect]
     Indication: SEDATION
     Dosage: UNK
     Dates: start: 20081212
  3. ATENOLOL [Concomitant]
     Dosage: 50MG PER DAY

REACTIONS (9)
  - ABDOMINAL PAIN UPPER [None]
  - BURNING SENSATION [None]
  - CHEST PAIN [None]
  - GASTRIC ULCER [None]
  - GASTROOESOPHAGEAL REFLUX DISEASE [None]
  - HIATUS HERNIA [None]
  - MUSCLE SPASMS [None]
  - OESOPHAGEAL SPASM [None]
  - OXYGEN SATURATION DECREASED [None]
